FAERS Safety Report 12343173 (Version 3)
Quarter: 2016Q3

REPORT INFORMATION
  Report Type: Spontaneous
  Country: CA (occurrence: CA)
  Receive Date: 20160506
  Receipt Date: 20160712
  Transmission Date: 20161109
  Serious: Yes (Hospitalization, Other)
  Sender: FDA-Public Use
  Company Number: CA-PFIZER INC-2016245505

PATIENT
  Age: 32 Year
  Sex: Female
  Weight: 58.5 kg

DRUGS (7)
  1. REVATIO [Suspect]
     Active Substance: SILDENAFIL CITRATE
     Indication: PULMONARY ARTERIAL HYPERTENSION
     Dosage: UNK
     Route: 048
  2. FUROSEMIDE. [Concomitant]
     Active Substance: FUROSEMIDE
     Dosage: UNK
  3. CARIPUL [Concomitant]
     Active Substance: EPOPROSTENOL
     Dosage: UNK
  4. WARFARIN [Concomitant]
     Active Substance: WARFARIN
     Dosage: UNK
  5. BOSENTAN. [Concomitant]
     Active Substance: BOSENTAN
     Dosage: UNK
  6. TOLOXIN [Concomitant]
     Active Substance: DIGOXIN
     Dosage: UNK
  7. SPIRONOLACTONE. [Concomitant]
     Active Substance: SPIRONOLACTONE
     Dosage: UNK

REACTIONS (2)
  - Hepatic congestion [Not Recovered/Not Resolved]
  - Ascites [Not Recovered/Not Resolved]
